FAERS Safety Report 8714846 (Version 2)
Quarter: 2012Q4

REPORT INFORMATION
  Report Type: Report from Study
  Country: CA (occurrence: CA)
  Receive Date: 20120809
  Receipt Date: 20120919
  Transmission Date: 20130627
  Serious: Yes (Hospitalization)
  Sender: FDA-Public Use
  Company Number: CA-SANOFI-AVENTIS-2012SA054951

PATIENT
  Age: 47 Year
  Sex: Male
  Weight: 91.4 kg

DRUGS (19)
  1. OXALIPLATIN [Suspect]
     Indication: COLORECTAL CANCER
     Route: 041
     Dates: start: 20120614, end: 20120614
  2. OXALIPLATIN [Suspect]
     Indication: COLORECTAL CANCER
     Route: 041
  3. OXALIPLATIN [Suspect]
     Indication: COLORECTAL CANCER
     Route: 041
     Dates: start: 20120712, end: 20120712
  4. INVESTIGATIONAL DRUG [Suspect]
     Indication: COLORECTAL CANCER
     Route: 065
     Dates: start: 20120614, end: 20120614
  5. INVESTIGATIONAL DRUG [Suspect]
     Indication: COLORECTAL CANCER
     Route: 065
     Dates: start: 20120712, end: 20120712
  6. INVESTIGATIONAL DRUG [Suspect]
     Indication: COLORECTAL CANCER
     Route: 065
  7. 5-FU [Suspect]
     Indication: COLORECTAL CANCER
     Route: 065
     Dates: start: 20120614, end: 20120614
  8. 5-FU [Suspect]
     Indication: COLORECTAL CANCER
     Route: 065
     Dates: start: 20120712, end: 20120712
  9. 5-FU [Suspect]
     Indication: COLORECTAL CANCER
     Route: 065
  10. FOLINIC ACID [Suspect]
     Indication: COLORECTAL CANCER
     Route: 065
     Dates: start: 20120614, end: 20120614
  11. FOLINIC ACID [Suspect]
     Indication: COLORECTAL CANCER
     Route: 065
     Dates: start: 20120712, end: 20120712
  12. FOLINIC ACID [Suspect]
     Indication: COLORECTAL CANCER
     Route: 065
  13. IMODIUM ^JANSSEN^ [Concomitant]
  14. OXYCODONE [Concomitant]
  15. ZOPICLONE [Concomitant]
  16. STEMETIL [Concomitant]
  17. BACLOFEN [Concomitant]
  18. ENOXAPARIN [Concomitant]
     Dates: start: 20120715, end: 20120717
  19. DALTEPARIN [Concomitant]

REACTIONS (1)
  - Pleural effusion [Recovering/Resolving]
